FAERS Safety Report 23027028 (Version 3)
Quarter: 2023Q4

REPORT INFORMATION
  Report Type: Report from Study
  Country: DE (occurrence: DE)
  Receive Date: 20231004
  Receipt Date: 20231006
  Transmission Date: 20240109
  Serious: Yes (Hospitalization)
  Sender: FDA-Public Use
  Company Number: DE-JNJFOC-20230646496

PATIENT
  Age: 74 Year
  Sex: Male
  Weight: 70 kg

DRUGS (36)
  1. TECLISTAMAB [Suspect]
     Active Substance: TECLISTAMAB
     Indication: Plasma cell myeloma
     Route: 058
     Dates: start: 20220621, end: 20220623
  2. TECLISTAMAB [Suspect]
     Active Substance: TECLISTAMAB
     Route: 058
     Dates: start: 20220627, end: 20230626
  3. TECLISTAMAB [Suspect]
     Active Substance: TECLISTAMAB
     Route: 058
     Dates: start: 20220621, end: 20220624
  4. TECLISTAMAB [Suspect]
     Active Substance: TECLISTAMAB
     Route: 058
     Dates: start: 20220627, end: 20230626
  5. DARATUMUMAB [Suspect]
     Active Substance: DARATUMUMAB
     Indication: Plasma cell myeloma
     Route: 058
     Dates: start: 20220620, end: 20230622
  6. DARATUMUMAB [Suspect]
     Active Substance: DARATUMUMAB
     Route: 058
     Dates: start: 20220620, end: 20230411
  7. ACYCLOVIR [Concomitant]
     Active Substance: ACYCLOVIR
     Indication: Antiviral prophylaxis
     Dosage: 600
     Route: 048
     Dates: start: 20180101
  8. ASPIRIN [Concomitant]
     Active Substance: ASPIRIN
     Indication: Aortic stenosis
     Dosage: 100
     Route: 048
     Dates: start: 20200101, end: 20230711
  9. METOPROLOL [Concomitant]
     Active Substance: METOPROLOL
     Indication: Hypertension
     Dosage: 95
     Route: 048
     Dates: start: 20210101
  10. SULFAMETHOXAZOLE\TRIMETHOPRIM [Concomitant]
     Active Substance: SULFAMETHOXAZOLE\TRIMETHOPRIM
     Indication: Prophylaxis
     Dosage: 960
     Route: 048
     Dates: start: 20220620
  11. PANTOPRAZOLE [Concomitant]
     Active Substance: PANTOPRAZOLE
     Indication: Prophylaxis against gastrointestinal ulcer
     Dosage: 20
     Route: 048
     Dates: start: 20220620
  12. VALSARTAN [Concomitant]
     Active Substance: VALSARTAN
     Indication: Hypertension
     Dosage: 240
     Route: 048
     Dates: start: 20220817, end: 20230612
  13. FONDAPARINUX [Concomitant]
     Active Substance: FONDAPARINUX
     Indication: Thrombosis prophylaxis
     Dosage: 2.5
     Route: 058
     Dates: start: 20230505, end: 20230521
  14. FONDAPARINUX [Concomitant]
     Active Substance: FONDAPARINUX
     Dosage: 1.5
     Route: 058
     Dates: start: 20230619, end: 20230621
  15. ACETAMINOPHEN [Concomitant]
     Active Substance: ACETAMINOPHEN
     Indication: Dyspnoea
     Dosage: 500
     Route: 048
     Dates: start: 20230505, end: 20230522
  16. ACETAMINOPHEN [Concomitant]
     Active Substance: ACETAMINOPHEN
     Indication: Bronchopulmonary aspergillosis
  17. PRAVASTATIN [Concomitant]
     Active Substance: PRAVASTATIN
     Indication: Dyspnoea
     Dosage: 40
     Route: 048
     Dates: start: 20230508
  18. PRAVASTATIN [Concomitant]
     Active Substance: PRAVASTATIN
     Indication: Bronchopulmonary aspergillosis
  19. AMLODIPINE [Concomitant]
     Active Substance: AMLODIPINE BESYLATE
     Indication: Hypertension
     Dosage: 5
     Route: 048
     Dates: start: 20230515, end: 20230612
  20. VORICONAZOLE [Concomitant]
     Active Substance: VORICONAZOLE
     Indication: Parainfluenzae virus infection
     Dosage: 200
     Route: 048
     Dates: start: 20230516
  21. VORICONAZOLE [Concomitant]
     Active Substance: VORICONAZOLE
     Indication: Bronchopulmonary aspergillosis
  22. SPIRIVA [Concomitant]
     Active Substance: TIOTROPIUM BROMIDE MONOHYDRATE
     Indication: Chronic obstructive pulmonary disease
     Dosage: 2
     Route: 055
     Dates: start: 20230522
  23. ATROVENT [Concomitant]
     Active Substance: IPRATROPIUM BROMIDE
     Indication: Chronic obstructive pulmonary disease
     Dosage: 20
     Route: 055
     Dates: start: 20230621
  24. EDOXABAN [Concomitant]
     Active Substance: EDOXABAN
     Indication: Atrial fibrillation
     Dosage: 30
     Route: 048
     Dates: start: 20230709
  25. PENTAGLOBIN [Concomitant]
     Active Substance: HUMAN IMMUNOGLOBULIN G
     Indication: Hypoglobulinaemia
     Dosage: 2.5
     Route: 042
     Dates: start: 20230717, end: 20230717
  26. IPRATROPIUM BROMIDE [Concomitant]
     Active Substance: IPRATROPIUM BROMIDE\IPRATROPIUM BROMIDE ANHYDROUS
     Indication: Dyspnoea
     Dosage: 250
     Route: 055
     Dates: start: 20230508, end: 20230522
  27. IPRATROPIUM BROMIDE [Concomitant]
     Active Substance: IPRATROPIUM BROMIDE\IPRATROPIUM BROMIDE ANHYDROUS
     Indication: Bronchopulmonary aspergillosis
  28. LEVOTHYROXINE [Concomitant]
     Active Substance: LEVOTHYROXINE
     Indication: Hypothyroidism
     Route: 048
     Dates: start: 20230718
  29. KALINORM [Concomitant]
     Indication: Hypokalaemia
     Route: 048
     Dates: start: 20230721, end: 20230723
  30. TAMSULOSIN [Concomitant]
     Active Substance: TAMSULOSIN
     Indication: Avoidant personality disorder
     Dosage: 0.4
     Route: 048
     Dates: start: 20230726
  31. ACETYLCYSTEINE [Concomitant]
     Active Substance: ACETYLCYSTEINE
     Indication: Dyspnoea
     Dosage: 600
     Route: 048
     Dates: start: 20230508, end: 20230712
  32. ACETYLCYSTEINE [Concomitant]
     Active Substance: ACETYLCYSTEINE
     Indication: Bronchopulmonary aspergillosis
  33. ALBUTEROL [Concomitant]
     Active Substance: ALBUTEROL
     Indication: Chronic obstructive pulmonary disease
     Dosage: 10
     Route: 055
     Dates: start: 20230508, end: 20230522
  34. ALBUTEROL [Concomitant]
     Active Substance: ALBUTEROL
     Indication: Bronchopulmonary aspergillosis
     Dosage: 10
     Route: 055
     Dates: start: 20230621
  35. OXYGEN [Concomitant]
     Active Substance: OXYGEN
     Indication: Chronic obstructive pulmonary disease
     Route: 045
     Dates: start: 20230522
  36. OXYGEN [Concomitant]
     Active Substance: OXYGEN
     Indication: Tracheobronchitis
     Route: 055
     Dates: start: 20230716, end: 20230721

REACTIONS (3)
  - Urosepsis [Recovered/Resolved]
  - Infection [Recovered/Resolved]
  - Tracheobronchitis [Recovered/Resolved]

NARRATIVE: CASE EVENT DATE: 20230619
